FAERS Safety Report 8360695-7 (Version None)
Quarter: 2012Q2

REPORT INFORMATION
  Report Type: 
  Country: None (occurrence: None)
  Receive Date: 20120515
  Receipt Date: 20120508
  Transmission Date: 20120825
  Serious: Yes (Hospitalization)
  Sender: FDA-Public Use
  Company Number: US-ACTELION-A-NJ2012-65480

PATIENT

DRUGS (4)
  1. DIGOXIN [Concomitant]
  2. TRACLEER [Suspect]
     Indication: PULMONARY ARTERIAL HYPERTENSION
     Dosage: UNK
     Route: 048
     Dates: start: 20060815
  3. CELLCEPT [Concomitant]
  4. CALCIUM CHANNEL BLOCKERS [Concomitant]

REACTIONS (4)
  - AORTIC VALVE REPLACEMENT [None]
  - PYREXIA [None]
  - DYSPNOEA [None]
  - ORAL FUNGAL INFECTION [None]
